FAERS Safety Report 20418746 (Version 1)
Quarter: 2022Q1

REPORT INFORMATION
  Report Type: Spontaneous
  Country: ES (occurrence: ES)
  Receive Date: 20220202
  Receipt Date: 20220202
  Transmission Date: 20220423
  Serious: Yes (Other)
  Sender: FDA-Public Use
  Company Number: ES-JNJFOC-20210944429

PATIENT
  Age: 53 Year
  Sex: Male

DRUGS (2)
  1. TREMFYA [Suspect]
     Active Substance: GUSELKUMAB
     Indication: Psoriasis
     Route: 030
     Dates: start: 202106
  2. TREMFYA [Suspect]
     Active Substance: GUSELKUMAB
     Indication: Psoriatic arthropathy
     Route: 030
     Dates: start: 201911, end: 202010

REACTIONS (4)
  - Systemic lupus erythematosus [Recovered/Resolved]
  - Silicosis [Unknown]
  - Off label use [Unknown]
  - Incorrect route of product administration [Unknown]
